FAERS Safety Report 24419623 (Version 1)
Quarter: 2024Q4

REPORT INFORMATION
  Report Type: Spontaneous
  Country: JP (occurrence: JP)
  Receive Date: 20241010
  Receipt Date: 20241010
  Transmission Date: 20250114
  Serious: Yes (Other)
  Sender: CHEPLAPHARM
  Company Number: JP-CP_KK-2024JP001661

PATIENT
  Age: 8 Decade
  Sex: Male

DRUGS (10)
  1. CAPECITABINE [Suspect]
     Active Substance: CAPECITABINE
     Indication: Rectosigmoid cancer stage II
     Dosage: 17 CYCLES OF BEVACIZUMAB (BEV) + CAPOX THERAPY AS FIRST-LINE TREATMENT
  2. BEVACIZUMAB [Suspect]
     Active Substance: BEVACIZUMAB
     Indication: Rectosigmoid cancer stage II
     Dosage: 17 CYCLES OF BEVACIZUMAB (BEV) + CAPOX THERAPY AS FIRST-LINE TREATMENT
  3. OXALIPLATIN [Suspect]
     Active Substance: OXALIPLATIN
     Indication: Rectosigmoid cancer stage II
     Dosage: UNK
  4. LEUCOVORIN [Suspect]
     Active Substance: LEUCOVORIN\LEUCOVORIN CALCIUM
     Dosage: JANUARY 202X+3, RAM + FOLFIRI THERAPY WAS STARTED AS SECOND-LINE TREATMENT.
  5. FLUOROURACIL [Suspect]
     Active Substance: FLUOROURACIL
     Dosage: JANUARY 202X+3, RAM + FOLFIRI THERAPY WAS STARTED AS SECOND-LINE TREATMENT.
  6. IRINOTECAN [Suspect]
     Active Substance: IRINOTECAN
     Dosage: JANUARY 202X+3, RAM + FOLFIRI THERAPY WAS STARTED AS SECOND-LINE TREATMENT.
  7. RAMUCIRUMAB [Suspect]
     Active Substance: RAMUCIRUMAB
     Dosage: JANUARY 202X+3, RAM + FOLFIRI THERAPY WAS STARTED AS SECOND-LINE TREATMENT.
  8. AMLODIPINE [Concomitant]
     Active Substance: AMLODIPINE BESYLATE
     Dosage: 10 MILLIGRAM/DAY?DAILY DOSE: 10 MILLIGRAM
  9. CALCIUM CARBONATE\CHOLECALCIFEROL\MAGNESIUM CARBONATE [Concomitant]
     Active Substance: CALCIUM CARBONATE\CHOLECALCIFEROL\MAGNESIUM CARBONATE
     Indication: Product used for unknown indication
     Dosage: 2 TABLETS/DAY?DAILY DOSE: 2 DOSAGE FORM
  10. IRBESARTAN [Concomitant]
     Active Substance: IRBESARTAN
     Dosage: 200 MILLIGRAM/DAY?DAILY DOSE: 200 MILLIGRAM

REACTIONS (6)
  - Thrombotic microangiopathy [Unknown]
  - Platelet count decreased [Unknown]
  - Proteinuria [Unknown]
  - Generalised oedema [Recovering/Resolving]
  - Hypertension [Not Recovered/Not Resolved]
  - Blood lactate dehydrogenase increased [Unknown]
